FAERS Safety Report 7396247-5 (Version None)
Quarter: 2011Q2

REPORT INFORMATION
  Report Type: 
  Country: None (occurrence: None)
  Receive Date: 20110406
  Receipt Date: 20110325
  Transmission Date: 20111010
  Serious: Yes (Hospitalization)
  Sender: FDA-Public Use
  Company Number: IT-SANOFI-AVENTIS-2011SA017943

PATIENT
  Age: 84 Year
  Sex: Female

DRUGS (9)
  1. CLEXANE T [Suspect]
     Indication: PROPHYLAXIS
     Dosage: DOSE:1 UNIT(S)
     Route: 058
     Dates: start: 20110211, end: 20110303
  2. CARVEDILOL [Concomitant]
     Route: 065
  3. COUMADIN [Concomitant]
     Indication: PROPHYLAXIS
     Dosage: DOSE:1 UNIT(S)
     Route: 048
     Dates: start: 19920101, end: 20110211
  4. LASIX [Concomitant]
     Route: 065
  5. TAREG [Concomitant]
     Dosage: DOSE:1 UNIT(S)
     Route: 065
  6. LUVION [Concomitant]
     Dosage: DOSE:1 UNIT(S)
     Route: 065
  7. ALLOPURINOL [Concomitant]
     Route: 065
  8. NITRODERM [Concomitant]
     Route: 065
  9. TORADOL [Suspect]
     Dosage: DOSE:10 UNIT(S)
     Route: 042
     Dates: start: 20110211, end: 20110215

REACTIONS (4)
  - DIEULAFOY'S VASCULAR MALFORMATION [None]
  - DUODENAL ULCER [None]
  - GASTROINTESTINAL HAEMORRHAGE [None]
  - ANAEMIA [None]
